FAERS Safety Report 13703403 (Version 1)
Quarter: 2017Q2

REPORT INFORMATION
  Report Type: Spontaneous
  Country: US (occurrence: US)
  Receive Date: 20170629
  Receipt Date: 20170629
  Transmission Date: 20170830
  Serious: No
  Sender: FDA-Public Use
  Company Number: US-BAYER-2017-114336

PATIENT
  Age: 66 Year
  Sex: Female
  Weight: 51 kg

DRUGS (2)
  1. MIRALAX [Suspect]
     Active Substance: POLYETHYLENE GLYCOL 3350
     Indication: COLONOSCOPY
     Route: 065
  2. MIRAFIBER CAPLETS [Suspect]
     Active Substance: CITRIC ACID MONOHYDRATE\METHYLCELLULOSE
     Route: 048

REACTIONS (7)
  - Wrong technique in product usage process [Unknown]
  - Product use in unapproved indication [Unknown]
  - Oesophageal pain [Unknown]
  - Flatulence [Unknown]
  - Product use issue [Unknown]
  - Decreased appetite [Unknown]
  - Labelled drug-disease interaction medication error [None]
